FAERS Safety Report 15219801 (Version 1)
Quarter: 2018Q3

REPORT INFORMATION
  Report Type: Spontaneous
  Country: FR (occurrence: FR)
  Receive Date: 20180731
  Receipt Date: 20180731
  Transmission Date: 20181010
  Serious: Yes (Hospitalization, Other)
  Sender: FDA-Public Use
  Company Number: FR-AMGEN-FRASP2018103047

PATIENT
  Age: 58 Year
  Sex: Male
  Weight: 77 kg

DRUGS (1)
  1. ENBREL [Suspect]
     Active Substance: ETANERCEPT
     Indication: ANKYLOSING SPONDYLITIS
     Dosage: 1 DF, WEEKLY
     Route: 058
     Dates: end: 201803

REACTIONS (2)
  - Bronchopneumopathy [Recovered/Resolved]
  - Post infection glomerulonephritis [Recovering/Resolving]

NARRATIVE: CASE EVENT DATE: 201803
